FAERS Safety Report 9678784 (Version 1)
Quarter: 2013Q4

REPORT INFORMATION
  Report Type: Spontaneous
  Country: FR (occurrence: None)
  Receive Date: 20131107
  Receipt Date: 20131107
  Transmission Date: 20140711
  Serious: Yes (Death, Hospitalization)
  Sender: FDA-Public Use
  Company Number: SYM-2013-12409

PATIENT
  Age: 55 Year
  Sex: Female

DRUGS (6)
  1. FLAGYL [Suspect]
     Indication: PRODUCT USED FOR UNKNOWN INDICATION
     Route: 042
     Dates: start: 20080227, end: 20080305
  2. EVOLTRA [Suspect]
     Route: 042
     Dates: start: 20080301, end: 20080304
  3. CYTARABINE [Suspect]
     Route: 042
     Dates: start: 20080229, end: 20080304
  4. VANCOMYCINE [Suspect]
     Route: 042
     Dates: start: 20080223, end: 20080310
  5. IDARUBICIN (IDARUBICIN) [Concomitant]
  6. ARACYTINE (CYTARABINE) [Concomitant]

REACTIONS (3)
  - Drug eruption [None]
  - Shock [None]
  - Renal failure acute [None]
